FAERS Safety Report 18529215 (Version 1)
Quarter: 2020Q4

REPORT INFORMATION
  Report Type: Spontaneous
  Country: US (occurrence: US)
  Receive Date: 20201120
  Receipt Date: 20201120
  Transmission Date: 20210114
  Serious: Yes (Other)
  Sender: FDA-Public Use
  Company Number: US-PURDUE-USA-2020-0177415

PATIENT
  Sex: Female

DRUGS (1)
  1. OXYCONTIN [Suspect]
     Active Substance: OXYCODONE HYDROCHLORIDE
     Indication: PRODUCT USED FOR UNKNOWN INDICATION
     Dosage: UNKNOWN
     Route: 048

REACTIONS (7)
  - Overdose [Unknown]
  - Drug dependence [Unknown]
  - Drug rehabilitation [Unknown]
  - Generalised anxiety disorder [Unknown]
  - Drug use disorder [Unknown]
  - Maternal exposure during pregnancy [Recovered/Resolved]
  - Alcohol use disorder [Unknown]
